FAERS Safety Report 9170980 (Version 1)
Quarter: 2013Q1

REPORT INFORMATION
  Report Type: Spontaneous
  Country: JP (occurrence: JP)
  Receive Date: 20130319
  Receipt Date: 20130319
  Transmission Date: 20140127
  Serious: Yes (Other)
  Sender: FDA-Public Use
  Company Number: JP-ASTELLAS-2013JP003965

PATIENT
  Age: 77 Year
  Sex: Female

DRUGS (6)
  1. PROGRAF [Suspect]
     Indication: PROPHYLAXIS AGAINST GRAFT VERSUS HOST DISEASE
     Route: 065
  2. METHOTREXATE [Concomitant]
     Indication: PROPHYLAXIS AGAINST GRAFT VERSUS HOST DISEASE
     Dosage: 5 MG/M2, UNKNOWN/D
     Route: 065
  3. FLUDARABINE [Concomitant]
     Indication: PREMEDICATION
     Dosage: 30 MG/M2, UNKNOWN/D
     Route: 065
  4. BUSULFAN [Concomitant]
     Indication: PREMEDICATION
     Dosage: 3.2 MG/KG, UNKNOWN/D
     Route: 065
  5. DAUNORUBICIN [Concomitant]
     Indication: ACUTE MYELOID LEUKAEMIA
     Route: 065
  6. CYTARABINE [Concomitant]
     Indication: ACUTE MYELOID LEUKAEMIA
     Route: 065

REACTIONS (2)
  - Drug ineffective [Unknown]
  - Graft versus host disease [Unknown]
